FAERS Safety Report 6818789-0 (Version None)
Quarter: 2010Q3

REPORT INFORMATION
  Report Type: 
  Country: None (occurrence: None)
  Receive Date: 20100701
  Receipt Date: 20100622
  Transmission Date: 20110219
  Serious: Yes (Hospitalization)
  Sender: FDA-Public Use
  Company Number: 2010SP035251

PATIENT
  Age: 49 Year
  Sex: Female
  Weight: 86 kg

DRUGS (6)
  1. PEG-INTRON [Suspect]
     Indication: HEPATITIS C
     Dosage: 80 MCG; QW; SC
     Route: 058
     Dates: start: 20091010, end: 20091222
  2. RIBAVIRIN [Suspect]
     Indication: HEPATITIS C
     Dosage: 400 MG; QD; PO
     Route: 048
     Dates: start: 20091010, end: 20091222
  3. PROCRIT [Concomitant]
  4. ATENOLOL [Concomitant]
  5. AMLODIPINE [Concomitant]
  6. PHENERGAN [Concomitant]

REACTIONS (1)
  - CHOLELITHIASIS [None]
